FAERS Safety Report 8881744 (Version 1)
Quarter: 2012Q4

REPORT INFORMATION
  Report Type: 
  Country: US (occurrence: US)
  Receive Date: 20121105
  Receipt Date: 20121105
  Transmission Date: 20130627
  Serious: No
  Sender: FDA-Public Use
  Company Number: US-JNJFOC-20121015389

PATIENT
  Sex: Female
  Weight: 79.38 kg

DRUGS (3)
  1. SANDOZ FENTANYL TRANSDERMAL SYSTEM [Suspect]
     Indication: FIBROMYALGIA
     Route: 062
     Dates: start: 2010
  2. SANDOZ FENTANYL TRANSDERMAL SYSTEM [Suspect]
     Indication: LYME DISEASE
     Route: 062
     Dates: start: 2010
  3. UNKNOWN MEDICATION [Concomitant]
     Route: 065

REACTIONS (2)
  - Wrong technique in drug usage process [Not Recovered/Not Resolved]
  - Product quality issue [Unknown]
